FAERS Safety Report 13644072 (Version 1)
Quarter: 2017Q2

REPORT INFORMATION
  Report Type: Spontaneous
  Country: US (occurrence: US)
  Receive Date: 20170612
  Receipt Date: 20170612
  Transmission Date: 20170830
  Serious: No
  Sender: FDA-Public Use
  Company Number: US-009507513-1706USA005038

PATIENT
  Sex: Female

DRUGS (4)
  1. DEXAMETHASONE. [Concomitant]
     Active Substance: DEXAMETHASONE
  2. ZOMETA [Concomitant]
     Active Substance: ZOLEDRONIC ACID
  3. REVLIMID [Concomitant]
     Active Substance: LENALIDOMIDE
  4. KEYTRUDA [Suspect]
     Active Substance: PEMBROLIZUMAB
     Indication: PLASMA CELL MYELOMA
     Dosage: UNK
     Route: 042
     Dates: start: 201704

REACTIONS (2)
  - Product use in unapproved indication [Unknown]
  - Alopecia [Unknown]

NARRATIVE: CASE EVENT DATE: 2017
